FAERS Safety Report 5143307-5 (Version None)
Quarter: 2006Q4

REPORT INFORMATION
  Report Type: 
  Country: None (occurrence: None)
  Receive Date: 20061030
  Receipt Date: 20061018
  Transmission Date: 20070319
  Serious: Yes (Other)
  Sender: FDA-Public Use
  Company Number: 2006128356

PATIENT
  Age: 65 Year
  Sex: Male

DRUGS (1)
  1. ZOLOFT [Suspect]
     Indication: POST-TRAUMATIC STRESS DISORDER

REACTIONS (5)
  - DEPRESSION [None]
  - DISEASE RECURRENCE [None]
  - DYSPHAGIA [None]
  - LYMPHOMA [None]
  - POST-TRAUMATIC STRESS DISORDER [None]
